FAERS Safety Report 13892759 (Version 2)
Quarter: 2017Q3

REPORT INFORMATION
  Report Type: Spontaneous
  Country: TW (occurrence: TW)
  Receive Date: 20170822
  Receipt Date: 20170928
  Transmission Date: 20171127
  Serious: Yes (Other)
  Sender: FDA-Public Use
  Company Number: TW-REGENERON PHARMACEUTICALS, INC.-2017-20554

PATIENT

DRUGS (1)
  1. EYLEA [Suspect]
     Active Substance: AFLIBERCEPT
     Indication: POLYPOIDAL CHOROIDAL VASCULOPATHY
     Dosage: TOTAL INJECTIONS RECEIVED PRIOR THE EVENT: 5

REACTIONS (3)
  - Eye haemorrhage [Unknown]
  - Polypoidal choroidal vasculopathy [Unknown]
  - Subretinal fluid [Recovered/Resolved]
